FAERS Safety Report 7416552-3 (Version None)
Quarter: 2011Q2

REPORT INFORMATION
  Report Type: 
  Country: None (occurrence: None)
  Receive Date: 20110415
  Receipt Date: 20110404
  Transmission Date: 20111010
  Serious: Yes (Hospitalization)
  Sender: FDA-Public Use
  Company Number: US-AMGEN-USASP2011017912

PATIENT
  Age: 52 Year
  Sex: Female

DRUGS (1)
  1. ENBREL [Suspect]
     Indication: RHEUMATOID ARTHRITIS
     Dosage: 50 MG, QWK
     Dates: start: 20050201, end: 20110201

REACTIONS (5)
  - FALL [None]
  - JOINT RANGE OF MOTION DECREASED [None]
  - UPPER LIMB FRACTURE [None]
  - MUSCULOSKELETAL PAIN [None]
  - RHEUMATOID ARTHRITIS [None]
